FAERS Safety Report 14954510 (Version 1)
Quarter: 2018Q2

REPORT INFORMATION
  Report Type: Spontaneous
  Country: NO (occurrence: NO)
  Receive Date: 20180530
  Receipt Date: 20180530
  Transmission Date: 20180711
  Serious: Yes (Other)
  Sender: FDA-Public Use
  Company Number: NO-BIODELIVERY SCIENCES INTERNATIONAL-2017BDSI0016

PATIENT
  Age: 79 Year
  Sex: Male

DRUGS (2)
  1. PROPOFOL. [Concomitant]
     Active Substance: PROPOFOL
     Indication: PRODUCT USED FOR UNKNOWN INDICATION
     Dates: start: 20160216, end: 20160216
  2. FENTANYL. [Suspect]
     Active Substance: FENTANYL
     Indication: SURGERY
     Dosage: 0.5 MG (FIRST 0.3 MG, FOLLOWED BY 0.2 MG AFTER A LITTLE PAUSE)
     Route: 042
     Dates: start: 20160216, end: 20160216

REACTIONS (2)
  - Status epilepticus [Recovered/Resolved]
  - Seizure [Recovered/Resolved]

NARRATIVE: CASE EVENT DATE: 20160216
